FAERS Safety Report 20158456 (Version 18)
Quarter: 2024Q1

REPORT INFORMATION
  Report Type: Spontaneous
  Country: JP (occurrence: JP)
  Receive Date: 20211207
  Receipt Date: 20240108
  Transmission Date: 20240409
  Serious: Yes (Death, Life-Threatening, Hospitalization, Other)
  Sender: FDA-Public Use
  Company Number: JP-ONO-2021JP030430

PATIENT
  Age: 59 Year
  Sex: Male

DRUGS (10)
  1. YERVOY [Suspect]
     Active Substance: IPILIMUMAB
     Indication: Non-small cell lung cancer recurrent
     Dosage: 1 MG/KG, Q6W
     Route: 041
     Dates: start: 20211022, end: 20211022
  2. YERVOY [Suspect]
     Active Substance: IPILIMUMAB
     Route: 041
     Dates: end: 20211126
  3. OPDIVO [Suspect]
     Active Substance: NIVOLUMAB
     Indication: Non-small cell lung cancer recurrent
     Dosage: EVERY 2 WEEKS
     Route: 041
     Dates: start: 20211022, end: 20211112
  4. OPDIVO [Suspect]
     Active Substance: NIVOLUMAB
     Route: 041
     Dates: start: 20211112, end: 20211126
  5. PEMETREXED [Suspect]
     Active Substance: PEMETREXED
     Indication: Non-small cell lung cancer recurrent
     Dosage: UNK
     Dates: start: 20211022, end: 20211112
  6. PEMETREXED [Suspect]
     Active Substance: PEMETREXED
     Dosage: UNK
     Dates: start: 20211112, end: 20211112
  7. CISPLATIN [Concomitant]
     Active Substance: CISPLATIN
     Indication: Non-small cell lung cancer recurrent
     Dosage: 75 MG/M2
     Dates: start: 20211022, end: 20211112
  8. CISPLATIN [Concomitant]
     Active Substance: CISPLATIN
     Dosage: UNK
     Dates: start: 20211112, end: 20211112
  9. CISPLATIN [Concomitant]
     Active Substance: CISPLATIN
  10. CORTICOSTEROID NOS [Concomitant]
     Active Substance: CORTICOSTEROID NOS
     Indication: Rash
     Route: 061

REACTIONS (7)
  - Immune-mediated myocarditis [Fatal]
  - Pericardial effusion [Unknown]
  - Malaise [Unknown]
  - Nausea [Recovering/Resolving]
  - Immune-mediated dermatitis [Recovering/Resolving]
  - Pleural effusion [Unknown]
  - Cardiac hypertrophy [Unknown]

NARRATIVE: CASE EVENT DATE: 20210101
